FAERS Safety Report 10242448 (Version 1)
Quarter: 2014Q2

REPORT INFORMATION
  Report Type: Spontaneous
  Country: PT (occurrence: PT)
  Receive Date: 20140617
  Receipt Date: 20140617
  Transmission Date: 20141212
  Serious: Yes (Death, Hospitalization)
  Sender: FDA-Public Use
  Company Number: PHHY2014PT074377

PATIENT
  Age: 81 Year
  Sex: Female

DRUGS (1)
  1. CLOZAPINE [Suspect]
     Indication: HALLUCINATION, VISUAL
     Dosage: 100 MG, PERDAY

REACTIONS (14)
  - Cardiac failure [Fatal]
  - Renal failure acute [Fatal]
  - Urinary incontinence [Fatal]
  - Neuroleptic malignant syndrome [Unknown]
  - Confusional state [Unknown]
  - Pyrexia [Unknown]
  - Cogwheel rigidity [Unknown]
  - Muscle rigidity [Unknown]
  - Blood pressure increased [Unknown]
  - Blood urea increased [Unknown]
  - Blood creatinine increased [Unknown]
  - Blood creatine phosphokinase increased [Unknown]
  - Anaemia [Unknown]
  - Thrombocytopenia [Unknown]
